FAERS Safety Report 13496444 (Version 13)
Quarter: 2019Q3

REPORT INFORMATION
  Report Type: Spontaneous
  Country: JP (occurrence: JP)
  Receive Date: 20170428
  Receipt Date: 20190705
  Transmission Date: 20191004
  Serious: Yes (Life-Threatening, Hospitalization, Disabling, Other)
  Sender: FDA-Public Use
  Company Number: JP-009507513-1704JPN002318J

PATIENT
  Age: 54 Year
  Sex: Female
  Weight: 37 kg

DRUGS (1)
  1. KEYTRUDA [Suspect]
     Active Substance: PEMBROLIZUMAB
     Indication: NON-SMALL CELL LUNG CANCER
     Dosage: 200 MILLIGRAM, Q3W
     Route: 041
     Dates: start: 20170421, end: 20170922

REACTIONS (15)
  - Malignant neoplasm progression [Recovering/Resolving]
  - Seizure [Recovering/Resolving]
  - Blood corticotrophin decreased [Unknown]
  - Malaise [Unknown]
  - Hypopituitarism [Recovering/Resolving]
  - Hepatic function abnormal [Recovered/Resolved]
  - Adrenal insufficiency [Recovering/Resolving]
  - Hypoglycaemia [Unknown]
  - White blood cell count decreased [Unknown]
  - Hepatic function abnormal [Not Recovered/Not Resolved]
  - Pyrexia [Recovered/Resolved]
  - Rash [Recovered/Resolved]
  - Platelet count decreased [Unknown]
  - Hypoaesthesia [Recovering/Resolving]
  - Hepatic function abnormal [Unknown]

NARRATIVE: CASE EVENT DATE: 20170421
